FAERS Safety Report 18834563 (Version 1)
Quarter: 2021Q1

REPORT INFORMATION
  Report Type: Spontaneous
  Country: US (occurrence: US)
  Receive Date: 20210203
  Receipt Date: 20210203
  Transmission Date: 20210419
  Serious: No
  Sender: FDA-Public Use
  Company Number: US-ELI_LILLY_AND_COMPANY-US202101009807

PATIENT
  Sex: Male

DRUGS (3)
  1. HUMULIN N [Suspect]
     Active Substance: INSULIN HUMAN
     Dosage: 42 U, UNKNOWN
     Route: 058
     Dates: start: 1989
  2. HUMALOG [Suspect]
     Active Substance: INSULIN LISPRO
     Indication: TYPE 1 DIABETES MELLITUS
     Dosage: 44 U, UNKNOWN
     Route: 058
     Dates: start: 1989
  3. HUMULIN N [Suspect]
     Active Substance: INSULIN HUMAN
     Indication: TYPE 1 DIABETES MELLITUS
     Dosage: 42 U, UNKNOWN
     Route: 058
     Dates: start: 1989

REACTIONS (8)
  - Night blindness [Not Recovered/Not Resolved]
  - Photophobia [Not Recovered/Not Resolved]
  - Hypoglycaemia [Recovered/Resolved]
  - Blood glucose increased [Not Recovered/Not Resolved]
  - Visual field defect [Not Recovered/Not Resolved]
  - Altered visual depth perception [Not Recovered/Not Resolved]
  - Diabetes mellitus inadequate control [Unknown]
  - Drug ineffective [Not Recovered/Not Resolved]
